FAERS Safety Report 24764082 (Version 1)
Quarter: 2024Q4

REPORT INFORMATION
  Report Type: Spontaneous
  Country: KR (occurrence: KR)
  Receive Date: 20241223
  Receipt Date: 20241223
  Transmission Date: 20250115
  Serious: Yes (Other)
  Sender: ROCHE
  Company Number: KR-ROCHE-10000163925

PATIENT
  Age: 76 Year
  Sex: Female

DRUGS (2)
  1. BONVIVA [Suspect]
     Active Substance: IBANDRONATE SODIUM
     Indication: Osteoporosis
     Route: 042
     Dates: start: 2006, end: 2017
  2. ACTONEL [Suspect]
     Active Substance: RISEDRONATE SODIUM
     Indication: Osteoporosis
     Route: 048
     Dates: start: 2002, end: 2006

REACTIONS (4)
  - Atypical femur fracture [Unknown]
  - Tibia fracture [Unknown]
  - Atypical fracture [Unknown]
  - Stress fracture [Unknown]

NARRATIVE: CASE EVENT DATE: 20171215
